FAERS Safety Report 22025381 (Version 5)
Quarter: 2024Q4

REPORT INFORMATION
  Report Type: Spontaneous
  Country: US (occurrence: US)
  Receive Date: 20230223
  Receipt Date: 20241018
  Transmission Date: 20250114
  Serious: No
  Sender: ROCHE
  Company Number: US-ROCHE-3101635

PATIENT
  Age: 46 Year
  Sex: Female
  Weight: 53.07 kg

DRUGS (5)
  1. XOLAIR [Suspect]
     Active Substance: OMALIZUMAB
     Indication: Idiopathic urticaria
     Dosage: STRENGTH: 150 MG/ML
     Route: 058
     Dates: start: 201807
  2. XOLAIR [Suspect]
     Active Substance: OMALIZUMAB
     Indication: Asthma
     Dosage: STRENGTH: 150 MG/ML
     Route: 058
     Dates: start: 20180719
  3. XOLAIR [Suspect]
     Active Substance: OMALIZUMAB
     Dosage: STRENGTH: 150 MG/ML
     Route: 058
     Dates: start: 20180720
  4. XOLAIR [Suspect]
     Active Substance: OMALIZUMAB
     Dosage: STRENGTH: 150 MG/ML
     Route: 058
     Dates: start: 20190813
  5. TAKHZYRO [Concomitant]
     Active Substance: LANADELUMAB-FLYO

REACTIONS (5)
  - Abdominal distension [Recovered/Resolved]
  - Off label use [Unknown]
  - Pruritus [Unknown]
  - Swelling face [Unknown]
  - Weight increased [Unknown]

NARRATIVE: CASE EVENT DATE: 20221119
